FAERS Safety Report 4860863-2 (Version None)
Quarter: 2005Q4

REPORT INFORMATION
  Report Type: 
  Country: None (occurrence: None)
  Receive Date: 20051220
  Receipt Date: 20051209
  Transmission Date: 20060501
  Serious: Yes (Other)
  Sender: FDA-Public Use
  Company Number: CA-BRISTOL-MYERS SQUIBB COMPANY-13218441

PATIENT
  Age: 89 Year
  Sex: Male

DRUGS (8)
  1. TEQUIN [Suspect]
     Route: 042
  2. ASPIRIN [Concomitant]
  3. COUMADIN [Concomitant]
  4. DIGOXIN [Concomitant]
     Route: 048
  5. GLUCONORM [Concomitant]
     Route: 048
  6. PENICILLIN G [Concomitant]
     Route: 042
  7. PRINIVIL [Concomitant]
     Route: 048
  8. TIAZAC [Concomitant]

REACTIONS (2)
  - HYPERGLYCAEMIA [None]
  - HYPOGLYCAEMIA [None]
